FAERS Safety Report 9062761 (Version 2)
Quarter: 2013Q2

REPORT INFORMATION
  Report Type: Spontaneous
  Country: US (occurrence: US)
  Receive Date: 20130128
  Receipt Date: 20130401
  Transmission Date: 20140414
  Serious: Yes (Hospitalization, Other)
  Sender: FDA-Public Use
  Company Number: US-BAYER-2013-008194

PATIENT
  Age: 35 Year
  Sex: Female
  Weight: 52 kg

DRUGS (6)
  1. YAZ [Suspect]
     Dosage: UNK
  2. YASMIN [Suspect]
     Dosage: UNK
  3. CLARITIN [Concomitant]
     Dosage: UNK
     Dates: start: 20080701
  4. ZYRTEC [Concomitant]
     Dosage: UNK
     Dates: start: 20080701
  5. ZYRTEC [Concomitant]
     Dosage: UNK
     Dates: start: 20080721
  6. PROTONIX [Concomitant]

REACTIONS (6)
  - Deep vein thrombosis [None]
  - Pelvic venous thrombosis [None]
  - Deep vein thrombosis [None]
  - Injury [None]
  - Pain [None]
  - Pain [None]
